FAERS Safety Report 8083217-7 (Version None)
Quarter: 2012Q1

REPORT INFORMATION
  Report Type: 
  Country: None (occurrence: None)
  Receive Date: 20120127
  Receipt Date: 20110303
  Transmission Date: 20120608
  Serious: No
  Sender: FDA-Public Use
  Company Number: US-ABBOTT-11P-163-0708954-00

PATIENT
  Age: 50 Year
  Sex: Female

DRUGS (4)
  1. NEXIUM [Concomitant]
     Indication: PROPHYLAXIS AGAINST GASTROINTESTINAL ULCER
  2. PENTASA [Concomitant]
     Indication: CROHN'S DISEASE
  3. KETOPROFEN [Concomitant]
     Indication: ANKYLOSING SPONDYLITIS
  4. HUMIRA [Suspect]
     Indication: ANKYLOSING SPONDYLITIS
     Dates: start: 20100601, end: 20100601

REACTIONS (6)
  - INJECTION SITE SWELLING [None]
  - INJECTION SITE ERYTHEMA [None]
  - INJECTION SITE PAIN [None]
  - LIGAMENT SPRAIN [None]
  - INJECTION SITE PRURITUS [None]
  - INJECTION SITE NODULE [None]
